FAERS Safety Report 25192196 (Version 1)
Quarter: 2025Q2

REPORT INFORMATION
  Report Type: Spontaneous
  Country: CN (occurrence: CN)
  Receive Date: 20250414
  Receipt Date: 20250414
  Transmission Date: 20250716
  Serious: Yes (Hospitalization)
  Sender: COHERUS
  Company Number: CN-SHANGHAI JUNSHI BIOSCIENCES CO., LTD.-CN2025013665

PATIENT

DRUGS (7)
  1. TORIPALIMAB [Suspect]
     Active Substance: TORIPALIMAB
     Indication: Nasal cavity cancer
     Route: 041
     Dates: start: 20250228, end: 20250228
  2. ETOPOSIDE [Suspect]
     Active Substance: ETOPOSIDE
     Indication: Nasal cavity cancer
     Dosage: 120 MG, QD
     Route: 041
     Dates: start: 20250228, end: 20250302
  3. CISPLATIN [Suspect]
     Active Substance: CISPLATIN
     Indication: Nasal cavity cancer
     Dosage: 37 MG, QD
     Route: 041
     Dates: start: 20250228, end: 20250302
  4. SODIUM CHLORIDE [Concomitant]
     Active Substance: SODIUM CHLORIDE
     Indication: Medication dilution
     Dosage: 500 ML, QD
     Route: 041
     Dates: start: 20250228, end: 20250302
  5. SODIUM CHLORIDE [Concomitant]
     Active Substance: SODIUM CHLORIDE
     Dosage: 500 ML, QD
     Route: 041
     Dates: start: 20250228, end: 20250302
  6. SODIUM CHLORIDE [Concomitant]
     Active Substance: SODIUM CHLORIDE
     Indication: Medication dilution
     Dosage: 250 ML, QD
     Route: 041
     Dates: start: 20250228, end: 20250302
  7. SODIUM CHLORIDE [Concomitant]
     Active Substance: SODIUM CHLORIDE
     Indication: Medication dilution
     Route: 041
     Dates: start: 20250228, end: 20250228

REACTIONS (3)
  - Blood pressure decreased [Recovered/Resolved]
  - Supraventricular tachycardia [Recovered/Resolved]
  - Myelosuppression [Recovered/Resolved]

NARRATIVE: CASE EVENT DATE: 20250307
